FAERS Safety Report 17958409 (Version 1)
Quarter: 2020Q2

REPORT INFORMATION
  Report Type: Spontaneous
  Country: FR (occurrence: FR)
  Receive Date: 20200629
  Receipt Date: 20200629
  Transmission Date: 20200714
  Serious: Yes (Hospitalization)
  Sender: FDA-Public Use
  Company Number: FR-ELI_LILLY_AND_COMPANY-FR202006009912

PATIENT
  Age: 37 Year
  Sex: Male

DRUGS (5)
  1. COCAINE [Suspect]
     Active Substance: COCAINE
     Indication: POISONING DELIBERATE
     Dosage: 1 G, UNKNOWN
     Route: 065
     Dates: start: 20200107, end: 20200107
  2. PROZAC [Suspect]
     Active Substance: FLUOXETINE HYDROCHLORIDE
     Indication: INTENTIONAL OVERDOSE
     Dosage: 5 DOSAGE FORM, UNKNOWN
     Route: 048
     Dates: start: 20200107, end: 20200107
  3. NOZINAN [LEVOMEPROMAZINE] [Suspect]
     Active Substance: LEVOMEPROMAZINE
     Indication: INTENTIONAL OVERDOSE
     Dosage: 6 DOSAGE FORM, UNKNOWN
     Route: 048
     Dates: start: 20200107, end: 20200107
  4. LEXOMIL [Suspect]
     Active Substance: BROMAZEPAM
     Indication: INTENTIONAL OVERDOSE
     Dosage: 5 DOSAGE FORM, UNKNOWN
     Route: 048
     Dates: start: 20200107, end: 20200107
  5. XEROQUEL [Suspect]
     Active Substance: QUETIAPINE FUMARATE
     Indication: INTENTIONAL OVERDOSE
     Dosage: 6 DOSAGE FORM, UNKNOWN
     Route: 048
     Dates: start: 20200107, end: 20200107

REACTIONS (3)
  - Somnolence [Recovered/Resolved]
  - Poisoning deliberate [Recovered/Resolved]
  - Electrocardiogram QT prolonged [Unknown]

NARRATIVE: CASE EVENT DATE: 20200107
